FAERS Safety Report 8590802-2 (Version None)
Quarter: 2012Q3

REPORT INFORMATION
  Report Type: 
  Country: None (occurrence: None)
  Receive Date: 20120813
  Receipt Date: 20120808
  Transmission Date: 20120928
  Serious: Yes (Hospitalization, Other)
  Sender: FDA-Public Use
  Company Number: JP-AMGEN-JPNCT2012050227

PATIENT
  Age: 86 Year
  Sex: Female
  Weight: 46 kg

DRUGS (32)
  1. DARBEPOETIN ALFA [Suspect]
     Indication: NEPHROGENIC ANAEMIA
     Dosage: 30 MUG, QD
     Route: 058
     Dates: start: 20110420, end: 20110420
  2. DARBEPOETIN ALFA [Suspect]
     Dosage: 30 MUG, UNK
     Route: 058
     Dates: start: 20120201, end: 20120208
  3. AMARYL [Concomitant]
     Dosage: UNK
     Route: 048
  4. NATEGLINIDE [Concomitant]
     Dosage: UNK
     Route: 048
  5. DARBEPOETIN ALFA [Suspect]
     Dosage: 30 MUG, UNK
     Route: 058
     Dates: start: 20120215, end: 20120229
  6. LOSARTAN POTASSIUM [Concomitant]
     Indication: NEPHROSCLEROSIS
     Dosage: UNK
     Route: 048
  7. SITAGLIPTIN PHOSPHATE [Concomitant]
     Dosage: UNK
     Route: 048
  8. RILYFTER [Concomitant]
     Dosage: UNK
     Route: 048
  9. DARBEPOETIN ALFA [Suspect]
     Dosage: 30 MUG, Q4WK
     Route: 058
     Dates: start: 20111101, end: 20111209
  10. ETODOLAC [Concomitant]
     Dosage: UNK
     Route: 048
  11. NEUROTROPIN [Concomitant]
     Dosage: UNK
     Route: 048
  12. BUP-4 [Concomitant]
     Dosage: UNK
     Route: 048
  13. FUROSEMIDE [Concomitant]
     Indication: NEPHROSCLEROSIS
     Dosage: UNK
     Route: 048
  14. MECOBALAMIN [Concomitant]
     Dosage: UNK
     Route: 048
  15. HUMALOG [Concomitant]
     Dosage: UNK
     Route: 065
  16. DARBEPOETIN ALFA [Suspect]
     Dosage: 30 MUG, Q2WK
     Route: 058
     Dates: start: 20110808, end: 20110822
  17. DARBEPOETIN ALFA [Suspect]
     Dosage: 30 MUG, Q2WK
     Route: 058
     Dates: start: 20111215, end: 20111229
  18. DOXAZOSIN MESYLATE [Concomitant]
     Dosage: UNK
     Route: 048
  19. OMEPRAZOLE [Concomitant]
     Dosage: UNK
     Route: 048
  20. ACETAMINOPHEN [Concomitant]
     Dosage: UNK
     Route: 048
  21. NOVORAPID [Concomitant]
     Dosage: UNK
     Route: 065
  22. DARBEPOETIN ALFA [Suspect]
     Dosage: 30 MUG, Q2WK
     Route: 058
     Dates: start: 20110920, end: 20111004
  23. CALBLOCK [Concomitant]
     Dosage: UNK
     Route: 048
  24. VOLTAREN [Concomitant]
     Dosage: UNK
     Route: 054
  25. METFORMIN HCL [Concomitant]
     Dosage: UNK
     Route: 048
  26. NESINA [Concomitant]
     Dosage: UNK
     Route: 048
  27. LANTUS [Concomitant]
     Dosage: UNK
     Route: 065
  28. DARBEPOETIN ALFA [Suspect]
     Dosage: 60 MUG, Q2WK
     Route: 058
     Dates: start: 20110613, end: 20110627
  29. DARBEPOETIN ALFA [Suspect]
     Dosage: 30 MUG, UNK
     Route: 058
     Dates: start: 20120113, end: 20120113
  30. ADALAT CC [Concomitant]
     Dosage: UNK
     Route: 048
  31. SENNAL [Concomitant]
     Dosage: UNK
     Route: 048
  32. NORVASC [Concomitant]
     Dosage: UNK
     Route: 048

REACTIONS (11)
  - DIABETES MELLITUS [None]
  - CYSTITIS [None]
  - DEMENTIA [None]
  - DELIRIUM [None]
  - DEEP VEIN THROMBOSIS [None]
  - HYPOGLYCAEMIA [None]
  - CARDIAC FAILURE CHRONIC [None]
  - BLOOD PRESSURE DECREASED [None]
  - POSTOPERATIVE WOUND INFECTION [None]
  - FEMORAL NECK FRACTURE [None]
  - PRURITUS [None]
